FAERS Safety Report 9240737 (Version 2)
Quarter: 2013Q2

REPORT INFORMATION
  Report Type: Spontaneous
  Country: US (occurrence: US)
  Receive Date: 20130418
  Receipt Date: 20130506
  Transmission Date: 20140414
  Serious: No
  Sender: FDA-Public Use
  Company Number: US-009507513-1304USA007746

PATIENT
  Sex: Male

DRUGS (1)
  1. AZASITE [Suspect]
     Indication: INFECTION
     Dosage: 1 DROP IN BOTH EYES TWICE DAILY FOR 5 DAYS THEN 1 DROP DAILY FOR 7 DAYS
     Route: 047
     Dates: start: 20130411, end: 20130414

REACTIONS (3)
  - Ocular hyperaemia [Recovered/Resolved]
  - Drug dose omission [Unknown]
  - Product quality issue [Unknown]
